FAERS Safety Report 7682396-0 (Version None)
Quarter: 2011Q3

REPORT INFORMATION
  Report Type: 
  Country: None (occurrence: None)
  Receive Date: 20110815
  Receipt Date: 20110803
  Transmission Date: 20111222
  Serious: Yes (Death, Other)
  Sender: FDA-Public Use
  Company Number: JP-BRISTOL-MYERS SQUIBB COMPANY-15291834

PATIENT
  Age: 66 Year
  Sex: Female

DRUGS (3)
  1. AVASTIN [Suspect]
     Indication: LUNG ADENOCARCINOMA
     Dosage: INJ
     Route: 041
  2. TAXOL [Suspect]
     Indication: LUNG ADENOCARCINOMA
     Route: 041
  3. PARAPLATIN [Suspect]
     Indication: LUNG ADENOCARCINOMA
     Route: 041

REACTIONS (3)
  - TRACHEAL FISTULA [None]
  - HYPERCAPNIA [None]
  - RESPIRATORY FAILURE [None]
